FAERS Safety Report 8516697-0 (Version None)
Quarter: 2012Q2

REPORT INFORMATION
  Report Type: 
  Country: None (occurrence: None)
  Receive Date: 20120406
  Receipt Date: 20110121
  Transmission Date: 20120825
  Serious: Yes (Hospitalization, Other)
  Sender: FDA-Public Use
  Company Number: PHHY2010US82749

PATIENT
  Age: 71 Year
  Sex: Male

DRUGS (3)
  1. DIOVAN [Suspect]
     Indication: HYPERTENSION
     Dosage: 320 MG, QD, ORAL
     Route: 048
     Dates: start: 20100601, end: 20101201
  2. TASIGNA [Suspect]
     Indication: CHRONIC MYELOID LEUKAEMIA
     Dosage: 300 MG, BID, ORAL
     Route: 048
     Dates: start: 20101028
  3. TASIGNA [Suspect]
     Indication: CHRONIC MYELOID LEUKAEMIA
     Dosage: 300 MG, BID, ORAL
     Route: 048
     Dates: start: 20071113, end: 20100624

REACTIONS (10)
  - DYSPNOEA [None]
  - LYMPH NODE PAIN [None]
  - URINARY HESITATION [None]
  - PNEUMONIA INFLUENZAL [None]
  - FATIGUE [None]
  - DIZZINESS [None]
  - RENAL FAILURE ACUTE [None]
  - POLLAKIURIA [None]
  - FEELING COLD [None]
  - SOMNOLENCE [None]
